FAERS Safety Report 25464523 (Version 1)
Quarter: 2025Q2

REPORT INFORMATION
  Report Type: Report from Study
  Country: US (occurrence: US)
  Receive Date: 20250621
  Receipt Date: 20250621
  Transmission Date: 20250716
  Serious: Yes (Other)
  Sender: UCB
  Company Number: US-UCBSA-2025036453

PATIENT

DRUGS (5)
  1. MIDAZOLAM [Suspect]
     Active Substance: MIDAZOLAM
     Indication: Sedation
  2. MIDAZOLAM [Suspect]
     Active Substance: MIDAZOLAM
     Indication: Off label use
  3. GLYCOPYRROLATE [Suspect]
     Active Substance: GLYCOPYRROLATE
     Indication: Premedication
  4. PROPOFOL [Suspect]
     Active Substance: PROPOFOL
     Indication: Sedation
  5. KETAMINE [Suspect]
     Active Substance: KETAMINE
     Indication: Sedation

REACTIONS (11)
  - Hypoxia [Unknown]
  - Critical illness [Unknown]
  - Laryngospasm [Unknown]
  - Obstructive airways disorder [Unknown]
  - Apnoea [Unknown]
  - Cough [Unknown]
  - Wheezing [Unknown]
  - Hypotension [Unknown]
  - Adverse event [Unknown]
  - Secretion discharge [Unknown]
  - Off label use [Unknown]
